FAERS Safety Report 7635908-7 (Version None)
Quarter: 2011Q3

REPORT INFORMATION
  Report Type: 
  Country: None (occurrence: None)
  Receive Date: 20110726
  Receipt Date: 20110712
  Transmission Date: 20111222
  Serious: Yes (Other)
  Sender: FDA-Public Use
  Company Number: US-ELI_LILLY_AND_COMPANY-US201011004839

PATIENT
  Sex: Male

DRUGS (4)
  1. ARTHROTEC [Concomitant]
  2. UROXATRAL [Concomitant]
  3. CYMBALTA [Suspect]
     Indication: BACK PAIN
     Dosage: 60 MG, DAILY (1/D)
     Dates: start: 20100101
  4. OXYCODONE HCL [Concomitant]

REACTIONS (5)
  - ASPARTATE AMINOTRANSFERASE INCREASED [None]
  - BLOOD ALKALINE PHOSPHATASE INCREASED [None]
  - BLOOD BILIRUBIN INCREASED [None]
  - ALANINE AMINOTRANSFERASE INCREASED [None]
  - ABNORMAL DREAMS [None]
